FAERS Safety Report 4675336-X (Version None)
Quarter: 2005Q2

REPORT INFORMATION
  Report Type: 
  Country: None (occurrence: None)
  Receive Date: 20050527
  Receipt Date: 20050322
  Transmission Date: 20051028
  Serious: Yes (Hospitalization)
  Sender: FDA-Public Use
  Company Number: GB-BRISTOL-MYERS SQUIBB COMPANY-12915096

PATIENT
  Age: 80 Year
  Sex: Male

DRUGS (2)
  1. CETUXIMAB [Suspect]
     Indication: COLORECTAL CANCER
     Dosage: MOST RECENT CETUXIMAB INFUSION ADMINISTERED ON 10-MAR-2005 (10TH). CETUXIMAB DELAYED.
     Route: 041
     Dates: start: 20050106, end: 20050404
  2. IRINOTECAN [Suspect]
     Indication: COLORECTAL CANCER
     Dosage: MOST RECENT IRINOTECAN INFUSION ADMINISTERED ON 10-MAR-2005 (4TH). IRINOTECAN DELAYED.
     Route: 042
     Dates: start: 20050106, end: 20050404

REACTIONS (7)
  - CELLULITIS [None]
  - DIARRHOEA [None]
  - HAEMOGLOBIN DECREASED [None]
  - HYPOMAGNESAEMIA [None]
  - NEUTROPENIA [None]
  - SKIN CANDIDA [None]
  - WHITE BLOOD CELL COUNT DECREASED [None]
